FAERS Safety Report 10086016 (Version 2)
Quarter: 2014Q2

REPORT INFORMATION
  Report Type: Spontaneous
  Country: GB (occurrence: GB)
  Receive Date: 20140418
  Receipt Date: 20140512
  Transmission Date: 20141212
  Serious: Yes (Other)
  Sender: FDA-Public Use
  Company Number: PHFR2014GB002869

PATIENT
  Age: 40 Year
  Sex: Female

DRUGS (3)
  1. TEGRETOL [Suspect]
     Indication: TRIGEMINAL NEURALGIA
     Dosage: 200 MG, TID
     Route: 048
     Dates: end: 201401
  2. ARCOXIA [Concomitant]
     Dosage: UNK UKN, UNK
  3. CO-CODAMOL [Concomitant]
     Dosage: UNK UKN, UNK

REACTIONS (6)
  - Paranoia [Recovered/Resolved]
  - Illusion [Recovered/Resolved]
  - Balance disorder [Recovered/Resolved]
  - Hallucination [Recovered/Resolved]
  - Aggression [Recovered/Resolved]
  - Confusional state [Recovered/Resolved]
